FAERS Safety Report 8755903 (Version 4)
Quarter: 2012Q4

REPORT INFORMATION
  Report Type: 
  Country: GB (occurrence: GB)
  Receive Date: 20120828
  Receipt Date: 20121025
  Transmission Date: 20130627
  Serious: Yes (Hospitalization, Disabling)
  Sender: FDA-Public Use
  Company Number: GB-TEVA-355061ISR

PATIENT
  Age: 47 Year
  Sex: Male

DRUGS (12)
  1. GEMCITABINE [Suspect]
     Indication: PANCREATIC CARCINOMA
     Route: 042
     Dates: start: 20120726
  2. GEMCITABINE [Suspect]
     Route: 042
     Dates: start: 20120719
  3. GEMCITABINE [Suspect]
     Route: 042
     Dates: start: 20120525, end: 20120621
  4. IMM-101 [Suspect]
     Indication: PANCREATIC CARCINOMA
     Route: 023
     Dates: start: 20120525, end: 20120621
  5. MST CONTINUS [Concomitant]
     Indication: PAIN
     Dosage: 60 Milligram Daily;
     Route: 048
  6. ORAMORPH [Concomitant]
     Indication: PAIN
     Route: 048
  7. OMEPRAZOLE [Concomitant]
     Indication: DUODENOGASTRIC REFLUX
     Dosage: 40 Milligram Daily;
     Route: 048
  8. METOCLOPRAMIDE [Concomitant]
     Indication: NAUSEA
     Dosage: 30 Milligram Daily;
     Route: 048
  9. BISACODYL [Concomitant]
     Indication: CONSTIPATION
     Route: 048
  10. AUGMENTIN [Concomitant]
     Indication: URINARY TRACT INFECTION
     Dosage: 3.6 Gram Daily;
     Route: 042
     Dates: start: 20120702, end: 20120709
  11. BUSCOPAN [Concomitant]
     Indication: ABDOMINAL PAIN
     Dosage: 40 Milligram Daily;
     Route: 048
     Dates: start: 20120516
  12. DOCUSATE [Concomitant]
     Indication: CONSTIPATION
     Dosage: 200 Milligram Daily;
     Route: 048

REACTIONS (2)
  - Cerebellar infarction [Not Recovered/Not Resolved]
  - Urinary tract infection [Unknown]
